FAERS Safety Report 23357786 (Version 4)
Quarter: 2025Q2

REPORT INFORMATION
  Report Type: Report from Study
  Country: PH (occurrence: PH)
  Receive Date: 20240102
  Receipt Date: 20250414
  Transmission Date: 20250716
  Serious: Yes (Hospitalization)
  Sender: OTSUKA
  Company Number: PH-OTSUKA-2023_033421

PATIENT
  Age: 76 Year
  Sex: Female

DRUGS (4)
  1. TOLVAPTAN [Suspect]
     Active Substance: TOLVAPTAN
     Indication: Blood sodium decreased
     Dosage: 0.5 DF, QOD (15 MG HALF TABLET EVERY OTHER DAY)
     Route: 048
     Dates: start: 20230313
  2. TOLVAPTAN [Suspect]
     Active Substance: TOLVAPTAN
     Route: 065
  3. TOLVAPTAN [Suspect]
     Active Substance: TOLVAPTAN
     Dosage: 0.5 DF, TIW (SAMSCA HALF TABLET EVERY MONDAY, WEDNESDAY, FRIDAY)
     Route: 065
  4. TOLVAPTAN [Suspect]
     Active Substance: TOLVAPTAN
     Dosage: 1 DF, TIW (15 MG 1 TABLET EVERY TUESDAY, THURSDAY, AND SATURDAY ONLY)
     Route: 065

REACTIONS (5)
  - Pneumonia [Unknown]
  - Swelling [Recovered/Resolved]
  - Wrong technique in product usage process [Unknown]
  - Inappropriate schedule of product administration [Unknown]
  - Underdose [Unknown]

NARRATIVE: CASE EVENT DATE: 20230313
